FAERS Safety Report 5729469-7 (Version None)
Quarter: 2008Q2

REPORT INFORMATION
  Report Type: 
  Country: None (occurrence: None)
  Receive Date: 20080506
  Receipt Date: 20080428
  Transmission Date: 20081010
  Serious: Yes (Hospitalization)
  Sender: FDA-Public Use
  Company Number: US-AMGEN-QUU273160

PATIENT
  Sex: Male
  Weight: 120.8 kg

DRUGS (10)
  1. ENBREL [Suspect]
     Indication: RHEUMATOID ARTHRITIS
     Dates: start: 20010508, end: 20080401
  2. AVAPRO [Concomitant]
     Route: 048
  3. ZETIA [Concomitant]
     Route: 048
  4. ALFUZOSIN HCL [Concomitant]
  5. AVODART [Concomitant]
  6. NITROGLYCERIN [Concomitant]
     Route: 060
  7. PLAQUENIL [Concomitant]
  8. DAYPRO [Concomitant]
  9. PROTONIX [Concomitant]
  10. ASPIRIN [Concomitant]

REACTIONS (4)
  - CELLULITIS [None]
  - EYELID OEDEMA [None]
  - JOINT SWELLING [None]
  - SKIN LESION [None]
